FAERS Safety Report 8489435-8 (Version None)
Quarter: 2012Q2

REPORT INFORMATION
  Report Type: 
  Country: None (occurrence: None)
  Receive Date: 20120628
  Receipt Date: 20120628
  Transmission Date: 20120825
  Serious: Yes (Hospitalization, Other)
  Sender: FDA-Public Use
  Company Number: None

PATIENT
  Sex: Male

DRUGS (13)
  1. LOVASTATIN [Concomitant]
  2. COMPLETE VITAMINS [Concomitant]
  3. COLACE [Concomitant]
  4. MOBIC [Concomitant]
  5. CO-Q-10 [Concomitant]
  6. ASPIRIN [Concomitant]
  7. TRICAR [Concomitant]
  8. EFFIENT [Suspect]
     Indication: VASCULAR GRAFT
     Dosage: 10 MG ONCE A NIGHT PO
     Route: 048
     Dates: start: 20110915, end: 20111015
  9. LAVAZA [Concomitant]
  10. LESINOPRIL [Concomitant]
  11. OMEPRAZOLE [Concomitant]
  12. ESTERC [Concomitant]
  13. DELTAZIM [Concomitant]

REACTIONS (14)
  - NERVOUSNESS [None]
  - CONSTIPATION [None]
  - CONFUSIONAL STATE [None]
  - CHEST PAIN [None]
  - SPEECH DISORDER [None]
  - VISUAL IMPAIRMENT [None]
  - ABDOMINAL PAIN UPPER [None]
  - CHEST DISCOMFORT [None]
  - DYSPNOEA [None]
  - ASTHENIA [None]
  - BACK PAIN [None]
  - COUGH [None]
  - DIZZINESS [None]
  - ARTHRALGIA [None]
